FAERS Safety Report 10729463 (Version 4)
Quarter: 2015Q2

REPORT INFORMATION
  Report Type: Report from Study
  Country: US (occurrence: US)
  Receive Date: 20150122
  Receipt Date: 20150406
  Transmission Date: 20150821
  Serious: Yes (Hospitalization, Other)
  Sender: FDA-Public Use
  Company Number: US-SA-2013SA105438

PATIENT
  Age: 31 Year
  Sex: Female

DRUGS (4)
  1. AMOXICILLIN. [Concomitant]
     Active Substance: AMOXICILLIN
  2. AUBAGIO [Suspect]
     Active Substance: TERIFLUNOMIDE
     Indication: MULTIPLE SCLEROSIS
     Route: 048
     Dates: end: 20150207
  3. CLINDAMYCIN [Concomitant]
     Active Substance: CLINDAMYCIN\CLINDAMYCIN PHOSPHATE
  4. AUBAGIO [Suspect]
     Active Substance: TERIFLUNOMIDE
     Indication: MULTIPLE SCLEROSIS
     Route: 048
     Dates: start: 20130819

REACTIONS (37)
  - White blood cell count abnormal [Unknown]
  - Tooth infection [Unknown]
  - Sensitivity of teeth [Unknown]
  - Skin papilloma [Unknown]
  - Acne [Recovered/Resolved]
  - Swelling face [Unknown]
  - Malaise [Unknown]
  - Drug dose omission [Unknown]
  - Swelling [Unknown]
  - Infection [Unknown]
  - Emotional distress [Unknown]
  - Muscle spasms [Unknown]
  - Migraine [Unknown]
  - Weight decreased [Unknown]
  - Nausea [Unknown]
  - Multiple sclerosis relapse [Recovering/Resolving]
  - Visual impairment [Unknown]
  - Gait disturbance [Unknown]
  - Influenza [Unknown]
  - Pain [Unknown]
  - Decreased appetite [Unknown]
  - Fall [Unknown]
  - Blood test abnormal [Unknown]
  - Decreased activity [Unknown]
  - Chest pain [Unknown]
  - Malaise [Unknown]
  - Blood pressure increased [Unknown]
  - JC virus infection [Unknown]
  - Heart rate increased [Unknown]
  - Tooth disorder [Unknown]
  - Cluster headache [Unknown]
  - Injury [Unknown]
  - Drug ineffective [Unknown]
  - Nuclear magnetic resonance imaging abnormal [Recovering/Resolving]
  - Vomiting [Unknown]
  - Hearing impaired [Unknown]
  - White blood cell disorder [Recovered/Resolved]

NARRATIVE: CASE EVENT DATE: 2014
